FAERS Safety Report 16053646 (Version 1)
Quarter: 2019Q1

REPORT INFORMATION
  Report Type: Spontaneous
  Country: US (occurrence: US)
  Receive Date: 20190308
  Receipt Date: 20190308
  Transmission Date: 20190418
  Serious: Yes (Other)
  Sender: FDA-Public Use
  Company Number: US-SUNOVION-2019SUN000959

PATIENT

DRUGS (4)
  1. LATUDA [Suspect]
     Active Substance: LURASIDONE HYDROCHLORIDE
     Route: 048
  2. LITHIUM. [Suspect]
     Active Substance: LITHIUM
  3. LAMICTAL [Suspect]
     Active Substance: LAMOTRIGINE
  4. TOPAMAX [Suspect]
     Active Substance: TOPIRAMATE

REACTIONS (4)
  - Electroconvulsive therapy [Recovering/Resolving]
  - Depressed mood [Recovering/Resolving]
  - Thinking abnormal [Recovering/Resolving]
  - Mania [Recovering/Resolving]
